FAERS Safety Report 19779382 (Version 1)
Quarter: 2021Q3

REPORT INFORMATION
  Report Type: Spontaneous
  Country: US (occurrence: US)
  Receive Date: 20210902
  Receipt Date: 20210902
  Transmission Date: 20211014
  Serious: No
  Sender: FDA-Public Use
  Company Number: None

PATIENT
  Sex: Male
  Weight: 85.5 kg

DRUGS (15)
  1. METFORMIN [Concomitant]
     Active Substance: METFORMIN HYDROCHLORIDE
  2. OLOPATADINE. [Concomitant]
     Active Substance: OLOPATADINE
  3. PREDNISONE. [Concomitant]
     Active Substance: PREDNISONE
  4. ABIRATERONE. [Suspect]
     Active Substance: ABIRATERONE ACETATE
     Indication: PROSTATE CANCER
     Route: 048
     Dates: start: 20210802
  5. ATORVASTATIN [Concomitant]
     Active Substance: ATORVASTATIN
  6. AZELASTINE. [Concomitant]
     Active Substance: AZELASTINE HYDROCHLORIDE
  7. TRIAMCINOLONE [Concomitant]
     Active Substance: TRIAMCINOLONE
  8. CARVEDILOL. [Concomitant]
     Active Substance: CARVEDILOL
  9. CETIRIZINE [Concomitant]
     Active Substance: CETIRIZINE HYDROCHLORIDE
  10. LISINOPRIL. [Concomitant]
     Active Substance: LISINOPRIL
  11. MYRBETRIQ [Concomitant]
     Active Substance: MIRABEGRON
  12. ASPIRIN. [Concomitant]
     Active Substance: ASPIRIN
  13. LOVENOX [Concomitant]
     Active Substance: ENOXAPARIN SODIUM
  14. OMEPRAZOLE. [Concomitant]
     Active Substance: OMEPRAZOLE
  15. ONDANSETRON [Concomitant]
     Active Substance: ONDANSETRON

REACTIONS (1)
  - Arthritis [None]
